FAERS Safety Report 4349835-4 (Version None)
Quarter: 2004Q2

REPORT INFORMATION
  Report Type: 
  Country: None (occurrence: None)
  Receive Date: 20040426
  Receipt Date: 20040415
  Transmission Date: 20050107
  Serious: Yes (Death)
  Sender: FDA-Public Use
  Company Number: 2004-BP-00171BP(1)

PATIENT
  Age: 28 Day
  Sex: Male

DRUGS (2)
  1. VIRAMUNE [Suspect]
     Indication: HIV INFECTION
     Dosage: 400 MG (200 MG, 400 MG DAILY), IU
     Route: 015
     Dates: start: 20030613, end: 20031023
  2. COMBIVIR [Suspect]
     Indication: HIV INFECTION
     Dosage: (NR, 2 DAILY), IU
     Route: 015
     Dates: start: 20030613, end: 20031023

REACTIONS (6)
  - DRUG SCREEN POSITIVE [None]
  - GONORRHOEA [None]
  - MATERNAL DRUGS AFFECTING FOETUS [None]
  - NEONATAL DISORDER [None]
  - STREPTOCOCCAL INFECTION [None]
  - SUDDEN INFANT DEATH SYNDROME [None]
